FAERS Safety Report 8923470 (Version 1)
Quarter: 2012Q4

REPORT INFORMATION
  Report Type: 
  Country: US (occurrence: US)
  Receive Date: 20121123
  Receipt Date: 20121123
  Transmission Date: 20130627
  Serious: No
  Sender: FDA-Public Use
  Company Number: US-BAYER-2012-120922

PATIENT
  Age: 64 Year
  Sex: Male
  Weight: 66.67 kg

DRUGS (7)
  1. ALEVE CAPLET/TABLET,MIDOL EXTENDED RELIEF CAPLET [Suspect]
     Indication: PAIN RELIEF
     Dosage: 2 DF, ONCE
     Route: 048
     Dates: start: 20121107
  2. ALEVE CAPLET/TABLET,MIDOL EXTENDED RELIEF CAPLET [Suspect]
     Indication: PAIN RELIEF
  3. PLAVIX [Concomitant]
  4. LISINOPRIL [Concomitant]
  5. METOPROLOL [Concomitant]
  6. KLONOPIN [Concomitant]
  7. LANTUS INSULIN [Concomitant]

REACTIONS (1)
  - Middle insomnia [Recovered/Resolved]
